FAERS Safety Report 13034754 (Version 3)
Quarter: 2017Q1

REPORT INFORMATION
  Report Type: Report from Study
  Country: JP (occurrence: JP)
  Receive Date: 20161216
  Receipt Date: 20170223
  Transmission Date: 20170428
  Serious: Yes (Hospitalization)
  Sender: FDA-Public Use
  Company Number: PHJP2016JP036322

PATIENT
  Age: 63 Year
  Sex: Male

DRUGS (2)
  1. FARYDAK [Suspect]
     Active Substance: PANOBINOSTAT
     Dosage: 15 MG, UNK
     Route: 048
  2. FARYDAK [Suspect]
     Active Substance: PANOBINOSTAT
     Indication: PLASMA CELL MYELOMA
     Dosage: 20 MG, UNK
     Route: 048
     Dates: start: 20161107

REACTIONS (3)
  - Diarrhoea [Recovered/Resolved]
  - Nausea [Unknown]
  - Ileus [Unknown]
